FAERS Safety Report 12655286 (Version 1)
Quarter: 2016Q3

REPORT INFORMATION
  Report Type: Report from Study
  Country: DZ (occurrence: DZ)
  Receive Date: 20160816
  Receipt Date: 20160816
  Transmission Date: 20161109
  Serious: Yes (Other)
  Sender: FDA-Public Use
  Company Number: DZ-PFIZER INC-2016381571

PATIENT

DRUGS (1)
  1. METHOTREXATE SODIUM. [Suspect]
     Active Substance: METHOTREXATE SODIUM
     Indication: PSORIASIS
     Dosage: 1340 MG, UNK
     Route: 030

REACTIONS (3)
  - Haematotoxicity [Unknown]
  - Hepatotoxicity [Unknown]
  - Pulmonary fibrosis [Unknown]
